FAERS Safety Report 18889935 (Version 1)
Quarter: 2021Q1

REPORT INFORMATION
  Report Type: Spontaneous
  Country: GB (occurrence: GB)
  Receive Date: 20210213
  Receipt Date: 20210213
  Transmission Date: 20210420
  Serious: Yes (Other)
  Sender: FDA-Public Use
  Company Number: NVSC2021GB028749

PATIENT
  Age: 34 Year
  Sex: Male
  Weight: 83 kg

DRUGS (3)
  1. PHENOXYMETHYLPENICILLIN (= PENICILLIN V) [Suspect]
     Active Substance: PENICILLIN V
     Indication: ILL-DEFINED DISORDER
     Dosage: UNK (TAKE ONE 4 TIMES/DAY)
     Route: 065
     Dates: start: 20210202
  2. DIFFLAM [BENZYDAMINE] [Concomitant]
     Active Substance: BENZYDAMINE
     Indication: ILL-DEFINED DISORDER
     Dosage: UNK (USE EVERY 3 HRS)
     Route: 065
     Dates: start: 20210202
  3. PHENOXYMETHYLPENICILLIN (= PENICILLIN V) [Suspect]
     Active Substance: PENICILLIN V
     Dosage: UNK
     Route: 065
     Dates: start: 20210203

REACTIONS (1)
  - Adverse drug reaction [Not Recovered/Not Resolved]
